FAERS Safety Report 23693726 (Version 1)
Quarter: 2024Q1

REPORT INFORMATION
  Report Type: Spontaneous
  Country: US (occurrence: None)
  Receive Date: 20240331
  Receipt Date: 20240331
  Transmission Date: 20240409
  Serious: Yes (Disabling)
  Sender: FDA-Public Use
  Company Number: None

PATIENT
  Age: 50 Year
  Sex: Female
  Weight: 114.3 kg

DRUGS (10)
  1. ROPIVACAINE [Suspect]
     Active Substance: ROPIVACAINE
     Dates: start: 20240126, end: 20240131
  2. METFORMIN [Concomitant]
  3. GABAPENTIN [Concomitant]
     Active Substance: GABAPENTIN
  4. TIZANIDINE [Suspect]
     Active Substance: TIZANIDINE
  5. CELEBREX [Concomitant]
     Active Substance: CELECOXIB
  6. LIDOCAINE [Concomitant]
     Active Substance: LIDOCAINE
  7. propanolol [Concomitant]
  8. ZOFRAN [Concomitant]
     Active Substance: ONDANSETRON HYDROCHLORIDE
  9. OXYCODONE [Concomitant]
  10. senna [Concomitant]

REACTIONS (2)
  - Pain [None]
  - Monoplegia [None]

NARRATIVE: CASE EVENT DATE: 20240126
